FAERS Safety Report 4952959-1 (Version None)
Quarter: 2006Q1

REPORT INFORMATION
  Report Type: 
  Country: None (occurrence: None)
  Receive Date: 20060320
  Receipt Date: 20060308
  Transmission Date: 20060701
  Serious: Yes (Death, Hospitalization)
  Sender: FDA-Public Use
  Company Number: 163-20785-06010265

PATIENT
  Age: 85 Year
  Sex: Female

DRUGS (5)
  1. THALOMID [Suspect]
     Indication: MULTIPLE MYELOMA
     Dosage: 200 MG QHS ORAL
     Route: 048
     Dates: start: 20050501, end: 20050606
  2. HYDROCODONE/APAP (VICODIN) [Concomitant]
  3. EYE DROPS [Concomitant]
  4. ZOMETA [Concomitant]
  5. ARANESP [Concomitant]

REACTIONS (9)
  - ATRIAL FIBRILLATION [None]
  - COAGULOPATHY [None]
  - CONFUSIONAL STATE [None]
  - DISEASE PROGRESSION [None]
  - FALL [None]
  - HYPERCALCAEMIA [None]
  - INTERNATIONAL NORMALISED RATIO INCREASED [None]
  - MENTAL STATUS CHANGES [None]
  - RENAL FAILURE CHRONIC [None]
